FAERS Safety Report 20089120 (Version 1)
Quarter: 2021Q4

REPORT INFORMATION
  Report Type: Spontaneous
  Country: BR (occurrence: BR)
  Receive Date: 20211119
  Receipt Date: 20211119
  Transmission Date: 20220303
  Serious: Yes (Other)
  Sender: FDA-Public Use
  Company Number: None

PATIENT
  Age: 2 Year
  Sex: Female
  Weight: 10.7 kg

DRUGS (14)
  1. DAPTOMYCIN [Suspect]
     Active Substance: DAPTOMYCIN
     Indication: Staphylococcal infection
     Dosage: 10 MG/KG/DAY
     Dates: start: 20201029, end: 20201110
  2. SPIRONOLACTONE [Concomitant]
     Active Substance: SPIRONOLACTONE
     Dosage: 1 TABLET EVERY 12 HOURS
     Route: 048
     Dates: start: 20200927, end: 20201106
  3. METHYLPREDNISOLONE [Concomitant]
     Active Substance: METHYLPREDNISOLONE
     Dosage: 500 MG / 8 ML (DOSAGE: 12 MG TWICE A DAY)
     Dates: start: 20201009, end: 20201120
  4. FUROSEMIDE [Concomitant]
     Active Substance: FUROSEMIDE
     Dosage: 10 MG / ML (DOSAGE: 6 MG EVERY 8 HOURS)
     Route: 042
     Dates: start: 20201022, end: 20201116
  5. CYCLOSPORINE [Concomitant]
     Active Substance: CYCLOSPORINE
     Dosage: 500 MG / ML (DOSAGE: 35 MG EVERY 12 HOURS)
     Route: 042
     Dates: start: 20201014
  6. MYCOPHENOLATE SODIUM [Concomitant]
     Active Substance: MYCOPHENOLATE SODIUM
     Dosage: 250 MG, TWICE A DAY
     Dates: start: 20201014, end: 20201114
  7. AMLODIPINE BESYLATE [Concomitant]
     Active Substance: AMLODIPINE BESYLATE
     Dosage: 3 MG, TWICE A DAY
     Route: 048
     Dates: start: 20200809
  8. CAPTOPRIL [Concomitant]
     Active Substance: CAPTOPRIL
     Dosage: 0.5 TABLET EVERY 12 HOURS
     Route: 048
     Dates: start: 20201106
  9. DIPYRONE [Concomitant]
     Active Substance: DIPYRONE
     Dosage: 500 MG / ML (DOSAGE: 0.5 ML EVERY 6 HOURS)
     Route: 042
     Dates: start: 20200807
  10. ACYCLOVIR [Concomitant]
     Active Substance: ACYCLOVIR
     Dosage: 250 MG / 10 ML (DOSAGE: 260 MG EVERY 8 HOURS)
     Route: 042
     Dates: start: 20201010, end: 20201113
  11. MICAFUNGIN [Concomitant]
     Active Substance: MICAFUNGIN
     Indication: Prophylaxis
     Dosage: 25 MG ONCE A DAY
     Route: 042
     Dates: start: 20201008
  12. SULFAMETHOXAZOLE [Concomitant]
     Active Substance: SULFAMETHOXAZOLE
     Indication: Prophylaxis
     Dosage: 200 MG + 400 MG / 5 ML (DOSAGE: 6 ML ONCE A DAY
     Route: 048
     Dates: start: 20200805
  13. MEROPENEM [Concomitant]
     Active Substance: MEROPENEM
     Dosage: 50 MG / 10 ML SINGLE DOSE OF 460 MG EVERY 8 HOURS
     Route: 042
     Dates: start: 20201008, end: 20201109
  14. URSODIOL [Concomitant]
     Active Substance: URSODIOL
     Dosage: 1 TABLET EVERY 8 HOURS
     Route: 048
     Dates: start: 20200814, end: 20201119

REACTIONS (1)
  - Blood creatine increased [Recovered/Resolved]

NARRATIVE: CASE EVENT DATE: 20201110
